FAERS Safety Report 7266898-7 (Version None)
Quarter: 2011Q1

REPORT INFORMATION
  Report Type: 
  Country: None (occurrence: None)
  Receive Date: 20110201
  Receipt Date: 20110125
  Transmission Date: 20110831
  Serious: Yes (Life-Threatening, Hospitalization, Other)
  Sender: FDA-Public Use
  Company Number: DE-ELI_LILLY_AND_COMPANY-DE201101005825

PATIENT
  Sex: Female
  Weight: 70 kg

DRUGS (4)
  1. LORAZEPAM [Concomitant]
  2. DOXEPIN HCL [Concomitant]
  3. CYMBALTA [Suspect]
     Dosage: UNK, UNKNOWN
  4. RIVOTRIL [Concomitant]

REACTIONS (6)
  - SUICIDE ATTEMPT [None]
  - ILEUS PARALYTIC [None]
  - COMA [None]
  - HYPOTENSION [None]
  - RESPIRATORY DEPRESSION [None]
  - INTENTIONAL OVERDOSE [None]
